FAERS Safety Report 25646469 (Version 1)
Quarter: 2025Q3

REPORT INFORMATION
  Report Type: Spontaneous
  Country: US (occurrence: US)
  Receive Date: 20250805
  Receipt Date: 20250805
  Transmission Date: 20251020
  Serious: No
  Sender: MERCK SHARP & DOHME LLC
  Company Number: US-009507513-2309317

PATIENT
  Age: 63 Year
  Sex: Female

DRUGS (7)
  1. ERTAPENEM [Suspect]
     Active Substance: ERTAPENEM
     Indication: Klebsiella test positive
  2. POSACONAZOLE [Suspect]
     Active Substance: POSACONAZOLE
     Indication: Mucormycosis
  3. PIRTOBRUTINIB [Concomitant]
     Active Substance: PIRTOBRUTINIB
     Indication: Mantle cell lymphoma
  4. PREDNISONE [Concomitant]
     Active Substance: PREDNISONE
  5. AMPHOTERICIN B [Concomitant]
     Active Substance: AMPHOTERICIN B
     Indication: Mucormycosis
  6. REMDESIVIR [Concomitant]
     Active Substance: REMDESIVIR
     Indication: Pneumocystis jirovecii pneumonia
  7. SULFAMETHOXAZOLE\TRIMETHOPRIM [Concomitant]
     Active Substance: SULFAMETHOXAZOLE\TRIMETHOPRIM

REACTIONS (1)
  - Product use in unapproved indication [Unknown]
